FAERS Safety Report 5544207-9 (Version None)
Quarter: 2007Q4

REPORT INFORMATION
  Report Type: 
  Country: None (occurrence: None)
  Receive Date: 20071210
  Receipt Date: 20061128
  Transmission Date: 20080405
  Serious: No
  Sender: FDA-Public Use
  Company Number: US-AMGEN-KDL201715

PATIENT
  Sex: Male

DRUGS (1)
  1. ENBREL [Suspect]
     Indication: ARTHRITIS
     Route: 058
     Dates: start: 20000501

REACTIONS (2)
  - NASOPHARYNGITIS [None]
  - PARANASAL SINUS HYPERSECRETION [None]
